FAERS Safety Report 16482223 (Version 1)
Quarter: 2019Q2

REPORT INFORMATION
  Report Type: Spontaneous
  Country: US (occurrence: US)
  Receive Date: 20190627
  Receipt Date: 20190627
  Transmission Date: 20190711
  Serious: Yes (Other)
  Sender: FDA-Public Use
  Company Number: US-PFIZER INC-2019273660

PATIENT
  Age: 68 Year
  Sex: Female

DRUGS (1)
  1. IBRANCE [Suspect]
     Active Substance: PALBOCICLIB
     Dosage: UNK UNK, CYCLIC

REACTIONS (8)
  - Tremor [Unknown]
  - Tumour marker increased [Unknown]
  - Familial tremor [Unknown]
  - Head titubation [Unknown]
  - Neoplasm progression [Unknown]
  - Constipation [Unknown]
  - Pyloric stenosis [Unknown]
  - Muscle spasms [Unknown]
